FAERS Safety Report 24107099 (Version 1)
Quarter: 2024Q3

REPORT INFORMATION
  Report Type: Spontaneous
  Country: US (occurrence: US)
  Receive Date: 20240718
  Receipt Date: 20240718
  Transmission Date: 20241016
  Serious: No
  Sender: ACCORD
  Company Number: US-Accord-381016

PATIENT
  Age: 53 Year
  Sex: Female

DRUGS (1)
  1. LETROZOLE [Suspect]
     Active Substance: LETROZOLE
     Indication: Breast cancer
     Route: 048
     Dates: start: 202306

REACTIONS (1)
  - Urine odour abnormal [Unknown]

NARRATIVE: CASE EVENT DATE: 20230601
